FAERS Safety Report 24444845 (Version 1)
Quarter: 2024Q4

REPORT INFORMATION
  Report Type: Spontaneous
  Country: US (occurrence: None)
  Receive Date: 20241015
  Receipt Date: 20241015
  Transmission Date: 20250115
  Serious: Yes (Disabling)
  Sender: Public
  Company Number: None

PATIENT
  Age: 64 Year
  Sex: Male
  Weight: 78.75 kg

DRUGS (11)
  1. ENTYVIO [Suspect]
     Active Substance: VEDOLIZUMAB
     Indication: Colitis ulcerative
     Dates: start: 20240906, end: 20240906
  2. MYRBETRIQ [Concomitant]
     Active Substance: MIRABEGRON
  3. tamsulosiin [Concomitant]
  4. CYMBALTA [Concomitant]
     Active Substance: DULOXETINE HYDROCHLORIDE
  5. MERCAPTOPURINE [Concomitant]
     Active Substance: MERCAPTOPURINE
  6. OMEPRAZOLE [Concomitant]
     Active Substance: OMEPRAZOLE
  7. PEPCID [Concomitant]
     Active Substance: FAMOTIDINE
  8. CALCIUM [Concomitant]
     Active Substance: CALCIUM
  9. Viramin D [Concomitant]
  10. VITAMINS [Concomitant]
     Active Substance: VITAMINS
  11. probiotics [Concomitant]

REACTIONS (1)
  - Cardiomyopathy [None]

NARRATIVE: CASE EVENT DATE: 20241014
